FAERS Safety Report 25636188 (Version 5)
Quarter: 2025Q4

REPORT INFORMATION
  Report Type: Spontaneous
  Country: US (occurrence: US)
  Receive Date: 20250803
  Receipt Date: 20251113
  Transmission Date: 20260118
  Serious: No
  Sender: SANOFI AVENTIS
  Company Number: US-SA-2025SA223761

PATIENT
  Age: 81 Year
  Sex: Female

DRUGS (2)
  1. DUPIXENT [Suspect]
     Active Substance: DUPILUMAB
     Indication: Asthma
     Dosage: 300 MG, QOW
     Route: 058
  2. DUPIXENT [Suspect]
     Active Substance: DUPILUMAB
     Dosage: 300 MG QOW
     Dates: start: 2025

REACTIONS (7)
  - Dry skin [Unknown]
  - Nasal congestion [Unknown]
  - Rash [Not Recovered/Not Resolved]
  - Drug effect less than expected [Unknown]
  - Dyspnoea [Unknown]
  - Product use complaint [Unknown]
  - Therapeutic response decreased [Unknown]
